FAERS Safety Report 6916734-0 (Version None)
Quarter: 2010Q3

REPORT INFORMATION
  Report Type: 
  Country: None (occurrence: None)
  Receive Date: 20100810
  Receipt Date: 20100728
  Transmission Date: 20110219
  Serious: Yes (Other)
  Sender: FDA-Public Use
  Company Number: MX-ROCHE-719296

PATIENT
  Sex: Male
  Weight: 72 kg

DRUGS (1)
  1. TAMIFLU [Suspect]
     Route: 048
     Dates: start: 20100126, end: 20100129

REACTIONS (7)
  - ANXIETY [None]
  - DEPRESSION [None]
  - DYSPNOEA [None]
  - EAR DISCOMFORT [None]
  - INSOMNIA [None]
  - MUSCULAR WEAKNESS [None]
  - TREMOR [None]
